FAERS Safety Report 13437193 (Version 1)
Quarter: 2017Q2

REPORT INFORMATION
  Report Type: Spontaneous
  Country: US (occurrence: US)
  Receive Date: 20170412
  Receipt Date: 20170412
  Transmission Date: 20170830
  Serious: No
  Sender: FDA-Public Use
  Company Number: US-SA-2016SA095071

PATIENT
  Age: 56 Year
  Sex: Female

DRUGS (1)
  1. ALLEGRA ALLERGY [Suspect]
     Active Substance: FEXOFENADINE HYDROCHLORIDE
     Dosage: DOSE AND FREQUENCY: 1/2 TABLET IN THE MORNING?AND BY MID-DAY
     Route: 048

REACTIONS (4)
  - Nausea [Unknown]
  - Anxiety [Unknown]
  - Headache [Unknown]
  - Wrong technique in product usage process [Unknown]
